FAERS Safety Report 17890239 (Version 1)
Quarter: 2020Q2

REPORT INFORMATION
  Report Type: Spontaneous
  Country: CA (occurrence: CA)
  Receive Date: 20200612
  Receipt Date: 20200612
  Transmission Date: 20200714
  Serious: Yes (Other)
  Sender: FDA-Public Use
  Company Number: CA-LEO PHARMA-330044

PATIENT
  Age: 70 Year
  Sex: Female
  Weight: 72 kg

DRUGS (4)
  1. PERINDOPRIL [Concomitant]
     Active Substance: PERINDOPRIL
     Indication: PRODUCT USED FOR UNKNOWN INDICATION
     Dosage: NOT REPORTED
  2. PROTOPIC [Suspect]
     Active Substance: TACROLIMUS
     Indication: LICHEN SCLEROSUS
     Dosage: BID
     Route: 061
  3. MIRTAZAPINE. [Concomitant]
     Active Substance: MIRTAZAPINE
     Indication: PRODUCT USED FOR UNKNOWN INDICATION
     Dosage: NOT REPORTED
  4. PANTOPRAZOLE [Concomitant]
     Active Substance: PANTOPRAZOLE
     Indication: PRODUCT USED FOR UNKNOWN INDICATION
     Dosage: NOT REPORTED

REACTIONS (7)
  - Application site pain [Recovering/Resolving]
  - Cough [Recovering/Resolving]
  - Hyperhidrosis [Recovering/Resolving]
  - Hypersensitivity [Recovering/Resolving]
  - Dyspnoea [Recovering/Resolving]
  - Product use in unapproved indication [Unknown]
  - Headache [Recovering/Resolving]
